FAERS Safety Report 19497432 (Version 1)
Quarter: 2021Q3

REPORT INFORMATION
  Report Type: Spontaneous
  Country: US (occurrence: US)
  Receive Date: 20210706
  Receipt Date: 20210706
  Transmission Date: 20211014
  Serious: Yes (Other)
  Sender: FDA-Public Use
  Company Number: None

PATIENT
  Age: 79 Year
  Sex: Female

DRUGS (1)
  1. ROSUVASTATIN  TAB 10MG [Suspect]
     Active Substance: ROSUVASTATIN
     Dates: start: 20210331, end: 20210606

REACTIONS (3)
  - Intestinal haemorrhage [None]
  - Pain [None]
  - Lethargy [None]

NARRATIVE: CASE EVENT DATE: 20210606
